FAERS Safety Report 8621667-8 (Version None)
Quarter: 2012Q3

REPORT INFORMATION
  Report Type: 
  Country: None (occurrence: None)
  Receive Date: 20120821
  Receipt Date: 20120821
  Transmission Date: 20120928
  Serious: Yes (Other)
  Sender: FDA-Public Use
  Company Number: None

PATIENT
  Age: 28 Year
  Sex: Female
  Weight: 74.8435 kg

DRUGS (1)
  1. MIRENA [Suspect]

REACTIONS (12)
  - PHOTOPSIA [None]
  - PANIC ATTACK [None]
  - BACK PAIN [None]
  - PARAESTHESIA [None]
  - DEPRESSION [None]
  - BREAST TENDERNESS [None]
  - HYPOAESTHESIA [None]
  - MEMORY IMPAIRMENT [None]
  - HEADACHE [None]
  - VISION BLURRED [None]
  - NAUSEA [None]
  - ANXIETY [None]
